FAERS Safety Report 7765765-X (Version None)
Quarter: 2011Q3

REPORT INFORMATION
  Report Type: 
  Country: None (occurrence: None)
  Receive Date: 20110921
  Receipt Date: 20110415
  Transmission Date: 20111222
  Serious: No
  Sender: FDA-Public Use
  Company Number: US-BAYER-2011-033720

PATIENT
  Sex: Female
  Weight: 62 kg

DRUGS (3)
  1. AMLODIPINE [Concomitant]
  2. LOSARTAN POTASSIUM [Concomitant]
  3. ALEVE (CAPLET) [Suspect]
     Indication: ARTHRITIS
     Dosage: 1-2 TABLET ONCE DAILY
     Route: 048
     Dates: start: 20090101

REACTIONS (1)
  - NO ADVERSE EVENT [None]
